FAERS Safety Report 6265868-5 (Version None)
Quarter: 2009Q3

REPORT INFORMATION
  Report Type: 
  Country: None (occurrence: None)
  Receive Date: 20090708
  Receipt Date: 20090708
  Transmission Date: 20100115
  Serious: Yes (Other)
  Sender: FDA-Public Use
  Company Number: None

PATIENT
  Age: 76 Year
  Sex: Male
  Weight: 89.8122 kg

DRUGS (2)
  1. LOVASTATIN [Suspect]
     Indication: BLOOD CHOLESTEROL
     Dosage: 1 TABLET BEDTIME PO
     Route: 048
     Dates: start: 20060307, end: 20060615
  2. SIMVASTATIN [Suspect]
     Indication: BLOOD CHOLESTEROL
     Dosage: 1 TABLET BEDTIME PO
     Route: 048
     Dates: start: 20090303, end: 20090327

REACTIONS (3)
  - ABASIA [None]
  - INSOMNIA [None]
  - PAIN [None]
